FAERS Safety Report 9400046 (Version 1)
Quarter: 2013Q3

REPORT INFORMATION
  Report Type: Spontaneous
  Country: US (occurrence: US)
  Receive Date: 20130715
  Receipt Date: 20130715
  Transmission Date: 20140515
  Serious: Yes (Hospitalization)
  Sender: FDA-Public Use
  Company Number: US-ASTELLAS-2013US007286

PATIENT
  Age: 53 Year
  Sex: Female

DRUGS (4)
  1. TARCEVA [Suspect]
     Indication: LUNG CANCER METASTATIC
     Dosage: 100 MG, UID/QD
     Route: 048
     Dates: start: 201303
  2. TARCEVA [Suspect]
     Dosage: UNK MG, UID/QD
     Route: 048
     Dates: start: 2010
  3. EFFEXOR [Concomitant]
     Indication: DEPRESSION
     Dosage: 75 MG, UID/QD
     Route: 048
  4. ATIVAN [Concomitant]
     Indication: ANXIETY
     Dosage: 1 MG, UNKNOWN/D
     Route: 048

REACTIONS (4)
  - Incorrect dose administered [Unknown]
  - Pulmonary embolism [Recovered/Resolved]
  - Deep vein thrombosis [Unknown]
  - Pleurisy [Unknown]
